FAERS Safety Report 8879241 (Version 3)
Quarter: 2014Q2

REPORT INFORMATION
  Report Type: Report from Study
  Country: US (occurrence: US)
  Receive Date: 20121031
  Receipt Date: 20140528
  Transmission Date: 20141212
  Serious: Yes (Hospitalization)
  Sender: FDA-Public Use
  Company Number: US-ACTELION-A-NJ2012-73523

PATIENT
  Age: 68 Year
  Sex: Male

DRUGS (5)
  1. TRACLEER [Suspect]
     Indication: PULMONARY ARTERIAL HYPERTENSION
     Dosage: UNK
     Route: 048
  2. SILDENAFIL [Concomitant]
  3. COUMADIN [Concomitant]
  4. REMODULIN [Concomitant]
  5. ADCIRCA [Concomitant]

REACTIONS (6)
  - Renal disorder [Unknown]
  - General physical health deterioration [Unknown]
  - Asthenia [Unknown]
  - Cardiac failure [Unknown]
  - Fluid retention [Unknown]
  - Oedema peripheral [Unknown]
